FAERS Safety Report 17799128 (Version 1)
Quarter: 2020Q2

REPORT INFORMATION
  Report Type: Spontaneous
  Country: US (occurrence: US)
  Receive Date: 20200518
  Receipt Date: 20200518
  Transmission Date: 20200714
  Serious: Yes (Life-Threatening, Other)
  Sender: FDA-Public Use
  Company Number: US-PURDUE PHARMA-USA-2020-0152209

PATIENT
  Sex: Male

DRUGS (1)
  1. OXYCONTIN [Suspect]
     Active Substance: OXYCODONE HYDROCHLORIDE
     Indication: FALL
     Dosage: UNK
     Route: 048

REACTIONS (7)
  - Suicidal ideation [Unknown]
  - Overdose [Unknown]
  - Near death experience [Unknown]
  - Unevaluable event [Unknown]
  - Malaise [Unknown]
  - Withdrawal syndrome [Unknown]
  - Drug dependence [Unknown]
